FAERS Safety Report 7166866-X (Version None)
Quarter: 2010Q4

REPORT INFORMATION
  Report Type: 
  Country: None (occurrence: None)
  Receive Date: 20101216
  Receipt Date: 20101206
  Transmission Date: 20110411
  Serious: Yes (Other)
  Sender: FDA-Public Use
  Company Number: US-JNJCH-2010028335

PATIENT
  Age: 4 Year
  Sex: Male

DRUGS (1)
  1. BENADRYL D SOLUTION [Suspect]
     Indication: ARTHROPOD STING
     Dosage: TEXT:ONCE
     Route: 048
     Dates: start: 19850101, end: 19850101

REACTIONS (3)
  - HYPERSENSITIVITY [None]
  - OFF LABEL USE [None]
  - WRONG DRUG ADMINISTERED [None]
